FAERS Safety Report 10334237 (Version 1)
Quarter: 2014Q3

REPORT INFORMATION
  Report Type: Spontaneous
  Country: US (occurrence: None)
  Receive Date: 20140721
  Receipt Date: 20140721
  Transmission Date: 20150326
  Serious: Yes (Other)
  Sender: FDA-Public Use
  Company Number: None

PATIENT
  Age: 29 Year
  Sex: Female
  Weight: 56.7 kg

DRUGS (1)
  1. VP-PNV-DHA [Suspect]
     Active Substance: ALPHA-TOCOPHEROL, D-\ASCORBIC ACID\CALCIUM CARBONATE\CHOLECALCIFEROL\CUPRIC SULFATE\CYANOCOBALAMIN\DOCONEXENT\ETHYL ICOSAPENTATE\FERROUS FUMARATE\FOLIC ACID\MAGNESIUM OXIDE\NIACIN\PYRIDOXINE\RIBOFLAVIN\THIAMINE MONONITRATE\VITAMIN A PALMITATE\ZINC OXIDE
     Dosage: 1 PILL  --  TAKEN BY MOUTH
     Route: 048

REACTIONS (8)
  - Urticaria [None]
  - Swelling face [None]
  - Joint swelling [None]
  - Skin irritation [None]
  - Erythema [None]
  - Joint irrigation [None]
  - Swollen tongue [None]
  - Pruritus [None]

NARRATIVE: CASE EVENT DATE: 20140718
